FAERS Safety Report 10008583 (Version 1)
Quarter: 2014Q1

REPORT INFORMATION
  Report Type: Spontaneous
  Country: US (occurrence: US)
  Receive Date: 20140313
  Receipt Date: 20140313
  Transmission Date: 20141002
  Serious: Yes (Other)
  Sender: FDA-Public Use
  Company Number: ALCN2014US001490

PATIENT
  Sex: Female
  Weight: 63.49 kg

DRUGS (4)
  1. TIMOLOL FALCON [Suspect]
     Indication: GLAUCOMA
     Dosage: UNK
  2. TRAVATAN Z [Suspect]
     Route: 047
  3. ANTIHYPERTENSIVES [Concomitant]
  4. ANTIGLAUCOMA PREPARATIONS AND MIOTICS [Concomitant]

REACTIONS (5)
  - Blood pressure increased [Unknown]
  - Chest pain [Unknown]
  - Asthenia [Unknown]
  - Musculoskeletal pain [Unknown]
  - Headache [Unknown]
